FAERS Safety Report 7220860-9 (Version None)
Quarter: 2011Q1

REPORT INFORMATION
  Report Type: 
  Country: None (occurrence: None)
  Receive Date: 20110112
  Receipt Date: 20110103
  Transmission Date: 20110831
  Serious: Yes (Hospitalization, Other)
  Sender: FDA-Public Use
  Company Number: FR-JNJFOC-20110100468

PATIENT
  Sex: Male

DRUGS (5)
  1. SEROPLEX [Concomitant]
     Indication: DEPRESSION
     Route: 048
  2. LEXOMIL [Concomitant]
     Indication: ANXIETY
     Route: 048
  3. DURAGESIC-100 [Suspect]
     Indication: PAIN
     Route: 062
  4. IMOVANE [Concomitant]
     Indication: INSOMNIA
     Route: 048
  5. EFFERALGAN [Concomitant]
     Indication: PAIN
     Route: 048

REACTIONS (3)
  - DYSURIA [None]
  - SUBILEUS [None]
  - URINE OUTPUT DECREASED [None]
